FAERS Safety Report 6127443-2 (Version None)
Quarter: 2009Q1

REPORT INFORMATION
  Report Type: 
  Country: None (occurrence: None)
  Receive Date: 20090319
  Receipt Date: 20080305
  Transmission Date: 20090719
  Serious: Yes (Hospitalization)
  Sender: FDA-Public Use
  Company Number: 02100-JPN-06-0343

PATIENT
  Age: 68 Year
  Sex: Female

DRUGS (22)
  1. PLAVIX [Suspect]
     Indication: CEREBRAL INFARCTION
     Dosage: 75 MG, DAILY DOSE ORAL
     Route: 048
     Dates: start: 20060307, end: 20060929
  2. PLETAL [Suspect]
     Indication: CEREBRAL INFARCTION
     Dosage: 100 MG, DAILY DOSE ORAL
     Route: 048
     Dates: start: 20080122, end: 20080716
  3. CETRAXATE HYDROCHLORIDE (CETRAXATE HYDROCHLORIDE) [Concomitant]
  4. MAGNESIUM OXIDE (MAGNESIUM OXIDE) [Concomitant]
  5. AROTINOLOL HYDROCHLORIDE (AROTINOLOL HYDROCHLORIDE) [Concomitant]
  6. ATORVASTATIN CALCIUM [Concomitant]
  7. DOMPERIDONE (DOMPERIDONE) [Concomitant]
  8. MIRTAZAPINE [Concomitant]
  9. CARBIDOPA PLUS LEVODOPA (CARBIDOPA PLUS LEVODOPA) [Concomitant]
  10. ZOLPIDEM TARTRATE [Concomitant]
  11. ROPINIROLE [Concomitant]
  12. ESCITALOPRAM [Concomitant]
  13. HUMAN INSULIN (HUMAN INSULIN) [Concomitant]
  14. ASPIRIN [Concomitant]
  15. ASPIRIN [Concomitant]
  16. CLONAZEPAM [Concomitant]
  17. AMITRIPTYLINE HYDROCHLORIDE [Concomitant]
  18. THIOCTIC ACID (THIOCTIC ACID) [Concomitant]
  19. ARONAMIN C PLUS (ARONAMIN C PLUS) [Concomitant]
  20. GAMMA-LINOLENIC ACID (GAMMA-LINOLENIC ACID) [Concomitant]
  21. DAGES CAPSULE (DAGES CAPSULE) [Concomitant]
  22. GLIMEPIRIDE [Concomitant]

REACTIONS (5)
  - COMPRESSION FRACTURE [None]
  - CONSTIPATION [None]
  - DYSPEPSIA [None]
  - FALL [None]
  - RIB FRACTURE [None]
